FAERS Safety Report 10963398 (Version 1)
Quarter: 2015Q1

REPORT INFORMATION
  Report Type: Spontaneous
  Country: GB (occurrence: None)
  Receive Date: 20150325
  Receipt Date: 20150325
  Transmission Date: 20150721
  Serious: Yes (Other)
  Sender: FDA-Public Use
  Company Number: FK201501344

PATIENT
  Age: 40 Year
  Sex: Male
  Weight: 116 kg

DRUGS (14)
  1. CHLORHEXIDINE GLUCONATE. [Concomitant]
     Active Substance: CHLORHEXIDINE GLUCONATE
  2. BETAMETHASONE VALERATE. [Concomitant]
     Active Substance: BETAMETHASONE VALERATE
  3. CALCIPOTRIOL [Concomitant]
     Active Substance: CALCIPOTRIENE
  4. COAL TAR. [Concomitant]
     Active Substance: COAL TAR
  5. PARACETAMOL [Concomitant]
     Active Substance: ACETAMINOPHEN
  6. SOYA OIL (GLYCINE MAX SEED OIL) [Concomitant]
  7. NAPROXEN. [Concomitant]
     Active Substance: NAPROXEN
  8. AVEENO (AVENA SATIVA FLUID EXTRACT) [Concomitant]
  9. LANSOPRAZOLE. [Concomitant]
     Active Substance: LANSOPRAZOLE
  10. COCODAMOL [Concomitant]
     Active Substance: ACETAMINOPHEN\CODEINE PHOSPHATE
  11. NEFOPAM [Concomitant]
     Active Substance: NEFOPAM
  12. METHOTREXATE (MANUFACTURER UNKNOWN) (METHOTREXATE) (METHOTREXATE) [Suspect]
     Active Substance: METHOTREXATE
     Indication: PRODUCT USED FOR UNKNOWN INDICATION
     Dosage: 1 IN 1 WK
     Dates: start: 20150107
  13. LYMECYCLINE [Concomitant]
     Active Substance: LYMECYCLINE
  14. METHOCARBAMOL. [Concomitant]
     Active Substance: METHOCARBAMOL

REACTIONS (1)
  - Serum procollagen type III N-terminal propeptide increased [None]

NARRATIVE: CASE EVENT DATE: 20150227
